FAERS Safety Report 7903170-3 (Version None)
Quarter: 2011Q4

REPORT INFORMATION
  Report Type: 
  Country: None (occurrence: None)
  Receive Date: 20111109
  Receipt Date: 20111028
  Transmission Date: 20120403
  Serious: Yes (Other)
  Sender: FDA-Public Use
  Company Number: PL-AMGEN-POLSP2011052243

PATIENT
  Age: 59 Year
  Sex: Female
  Weight: 109 kg

DRUGS (6)
  1. KALIPOZ [Concomitant]
     Dosage: UNK
     Route: 048
  2. ENBREL [Suspect]
     Indication: RHEUMATOID ARTHRITIS
     Dosage: 50 MG, 1X/WEEK
     Route: 058
     Dates: start: 20111003, end: 20111004
  3. METHOTREXATE [Concomitant]
     Dosage: 2.5 MG, UNK
     Route: 048
     Dates: start: 20050101
  4. FUROSEMID                          /00032601/ [Concomitant]
     Dosage: UNK
     Route: 048
     Dates: start: 20080101
  5. METYPRED                           /00049601/ [Concomitant]
     Dosage: UNK
     Route: 048
     Dates: start: 20050101
  6. VITRUM CALCIUM + D [Concomitant]
     Dosage: UNK

REACTIONS (3)
  - DYSPNOEA [None]
  - PRURITUS [None]
  - PYREXIA [None]
